FAERS Safety Report 7815888-1 (Version None)
Quarter: 2011Q4

REPORT INFORMATION
  Report Type: 
  Country: None (occurrence: None)
  Receive Date: 20111014
  Receipt Date: 20111011
  Transmission Date: 20120403
  Serious: Yes (Other)
  Sender: FDA-Public Use
  Company Number: MX-ABBOTT-10P-107-0640022-00

PATIENT
  Sex: Female
  Weight: 50 kg

DRUGS (1)
  1. DIVALPROEX SODIUM [Suspect]
     Indication: PETIT MAL EPILEPSY
     Dates: start: 20090430

REACTIONS (1)
  - HYPERTRICHOSIS [None]
